FAERS Safety Report 7702034-8 (Version None)
Quarter: 2011Q3

REPORT INFORMATION
  Report Type: 
  Country: None (occurrence: None)
  Receive Date: 20110822
  Receipt Date: 20110810
  Transmission Date: 20111222
  Serious: Yes (Hospitalization)
  Sender: FDA-Public Use
  Company Number: JP-PFIZER INC-2011175434

PATIENT
  Age: 54 Year
  Sex: Male
  Weight: 61.7 kg

DRUGS (29)
  1. KW-0761 [Suspect]
     Indication: ADULT T-CELL LYMPHOMA/LEUKAEMIA
     Dosage: UNK
     Route: 041
     Dates: start: 20110707
  2. SALOBEL [Concomitant]
     Dosage: 100 MG, 1X/DAY
     Route: 048
     Dates: start: 20110705, end: 20110707
  3. POLARAMINE [Concomitant]
     Dosage: 2 MG, 1X/DAY
     Route: 048
     Dates: start: 20110707, end: 20110707
  4. MAGNESIUM OXIDE HEAVY [Concomitant]
     Dosage: 0.25 G, 2X/DAY
     Route: 048
     Dates: start: 20110707, end: 20110713
  5. SOLU-CORTEF [Concomitant]
     Dosage: 100 MG, 1X/DAY
     Dates: start: 20110707, end: 20110707
  6. CYCLOPHOSPHAMIDE [Suspect]
     Indication: ADULT T-CELL LYMPHOMA/LEUKAEMIA
     Dosage: 350 MG/M2, 1X/DAY
     Route: 041
     Dates: start: 20110706, end: 20110706
  7. MAGNESIUM OXIDE HEAVY [Concomitant]
     Dosage: 0.67 G, 1X/DAY
     Route: 048
     Dates: start: 20110714, end: 20110714
  8. CEFEPIME DIHYDROCHLORIDE HYDRATE [Concomitant]
     Dosage: 7.5 MG, 1X/DAY
     Route: 048
     Dates: start: 20110719, end: 20110719
  9. LECICARBON [Concomitant]
     Dosage: 1 DF, UNK
     Route: 054
     Dates: start: 20110715, end: 20110718
  10. SOLU-CORTEF [Concomitant]
     Dosage: 100 MG, 1X/DAY
     Dates: start: 20110714, end: 20110714
  11. DOXORUBICIN HYDROCHLORIDE [Suspect]
     Indication: ADULT T-CELL LYMPHOMA/LEUKAEMIA
     Dosage: 40 MG/M2, 1X/DAY
     Route: 041
     Dates: start: 20110706, end: 20110706
  12. HYDROCORTONE [Suspect]
     Indication: ALLERGY PROPHYLAXIS
     Dosage: 100 MG, 1X/DAY (IJ)
     Dates: start: 20110707, end: 20110707
  13. FAMOTIDINE [Concomitant]
     Dosage: 10 MG, 1X/DAY
     Route: 048
     Dates: start: 20110715
  14. ONCOVIN [Suspect]
     Indication: ADULT T-CELL LYMPHOMA/LEUKAEMIA
     Dosage: 1 MG/M2, 1X/DAY
     Route: 041
     Dates: start: 20110706, end: 20110706
  15. BROTIZOLAM [Concomitant]
     Dosage: 0.25 MG, 1X/DAY
     Route: 048
     Dates: start: 20110707, end: 20110721
  16. ZOPICLONE [Concomitant]
     Dosage: 1 G, 1X/DAY
     Route: 048
  17. PREDNISOLONE [Suspect]
     Indication: ADULT T-CELL LYMPHOMA/LEUKAEMIA
     Dosage: 40 MG/M2, 1X/DAY
     Route: 048
     Dates: start: 20110706, end: 20110706
  18. ACETAMINOPHEN [Concomitant]
     Dosage: 400 MG, 1X/DAY
     Route: 048
     Dates: start: 20110707, end: 20110707
  19. AMPICILLIN SODIUM/SULBACTAM SODIUM [Concomitant]
     Dosage: 0.75 G, 2X/DAY
     Dates: start: 20110707, end: 20110707
  20. LECICARBON [Concomitant]
     Dosage: 3 MG, 1X/DAY (IJ)
     Dates: start: 20110715, end: 20110801
  21. ATARAX [Concomitant]
     Dosage: 25 MG, 1X/DAY
     Dates: start: 20110707, end: 20110707
  22. PURSENNID [Concomitant]
     Dosage: 24 MG, UNK
     Route: 048
     Dates: start: 20110711, end: 20110714
  23. MAGNESIUM OXIDE HEAVY [Concomitant]
     Dosage: 0.5 G, 3X/DAY
     Route: 048
     Dates: start: 20110714, end: 20110721
  24. SULFAMETHOXAZOLE [Concomitant]
     Dosage: UNK
  25. ISODINE GARGLE [Concomitant]
     Dosage: UNK
     Dates: start: 20110714
  26. FLUCONAZOLE [Concomitant]
     Dosage: 100 MG, 1X/DAY
     Route: 048
     Dates: start: 20110715
  27. CEFEPIME DIHYDROCHLORIDE HYDRATE [Concomitant]
     Dosage: 7.5 MG, 1X/DAY
     Route: 048
     Dates: start: 20110721
  28. LOXOPROFEN [Concomitant]
     Dosage: 60 MG, UNK
     Route: 048
     Dates: start: 20110705
  29. AMPICILLIN SODIUM/SULBACTAM SODIUM [Concomitant]
     Dosage: 0.5 G, 3X/DAY
     Dates: start: 20110708, end: 20110715

REACTIONS (1)
  - PNEUMONIA CYTOMEGALOVIRAL [None]
